FAERS Safety Report 18165489 (Version 1)
Quarter: 2020Q3

REPORT INFORMATION
  Report Type: Spontaneous
  Country: US (occurrence: US)
  Receive Date: 20200818
  Receipt Date: 20200818
  Transmission Date: 20201103
  Serious: No
  Sender: FDA-Public Use
  Company Number: US-IMMUNOMEDICS, INC.-2020IMMU000485

PATIENT
  Age: 62 Year
  Sex: Female

DRUGS (2)
  1. TRODELVY [Suspect]
     Active Substance: SACITUZUMAB GOVITECAN-HZIY
     Dosage: 330 MG, DAYS 1 AND 8 OF 21?DAYS CYCLE
     Route: 065
  2. TRODELVY [Suspect]
     Active Substance: SACITUZUMAB GOVITECAN-HZIY
     Indication: TRIPLE NEGATIVE BREAST CANCER
     Dosage: 330 MG, DAYS 1 AND 8 OF 21?DAYS CYCLE
     Route: 065
     Dates: start: 20200716, end: 20200716

REACTIONS (5)
  - Vomiting [Unknown]
  - Malaise [Unknown]
  - Blood urea increased [Unknown]
  - Fatigue [Unknown]
  - Headache [Unknown]

NARRATIVE: CASE EVENT DATE: 20200721
